FAERS Safety Report 24014916 (Version 4)
Quarter: 2024Q3

REPORT INFORMATION
  Report Type: Spontaneous
  Country: US (occurrence: US)
  Receive Date: 20240626
  Receipt Date: 20240709
  Transmission Date: 20241016
  Serious: Yes (Other)
  Sender: ROCHE
  Company Number: US-CHEPLA-2024007653

PATIENT
  Sex: Female
  Weight: 2.23 kg

DRUGS (12)
  1. GANCICLOVIR [Suspect]
     Active Substance: GANCICLOVIR
     Indication: Cytomegalovirus infection
     Dosage: 16 MG/KG EVERY 12H
     Route: 042
  2. VALGANCICLOVIR [Suspect]
     Active Substance: VALGANCICLOVIR
     Indication: Cytomegalovirus infection
     Dosage: 16 MG/KG EVERY 12H
     Route: 065
  3. MIDAZOLAM [Suspect]
     Active Substance: MIDAZOLAM
     Indication: Seizure
     Dosage: 0.05 MG/KG/HOUR
     Route: 065
  4. PHENOBARBITAL [Suspect]
     Active Substance: PHENOBARBITAL
     Indication: Seizure
     Dosage: MULTIPLE DOSES OF PHENOBARBITAL (TOTAL OF 50 MG/KG)
     Route: 065
  5. LEVETIRACETAM [Suspect]
     Active Substance: LEVETIRACETAM
     Indication: Seizure
     Dosage: TOTAL OF 60 MG/KG)
     Route: 065
  6. FOSPHENYTOIN [Suspect]
     Active Substance: FOSPHENYTOIN
     Indication: Seizure
     Dosage: TOTAL OF 40 MG/KG
     Route: 065
  7. DOPAMINE [Suspect]
     Active Substance: DOPAMINE HYDROCHLORIDE
     Indication: Hypotension
     Route: 065
  8. EPINEPHRINE [Suspect]
     Active Substance: EPINEPHRINE
     Indication: Hypotension
     Route: 065
  9. HYDROCORTISONE [Suspect]
     Active Substance: HYDROCORTISONE\HYDROCORTISONE ACETATE
     Indication: Hypotension
     Route: 065
  10. AMPICILLIN [Concomitant]
     Active Substance: AMPICILLIN
     Route: 065
  11. GENTAMICIN [Concomitant]
     Active Substance: GENTAMICIN
     Route: 065
  12. ACYCLOVIR [Concomitant]
     Active Substance: ACYCLOVIR
     Indication: Seizure
     Route: 042

REACTIONS (5)
  - Haematochezia [Unknown]
  - Hepatic function abnormal [Unknown]
  - Thrombocytopenia [Unknown]
  - Off label use [Unknown]
  - Off label use [Unknown]
